FAERS Safety Report 14695045 (Version 2)
Quarter: 2020Q3

REPORT INFORMATION
  Report Type: Report from Study
  Country: US (occurrence: US)
  Receive Date: 20180329
  Receipt Date: 20181022
  Transmission Date: 20201104
  Serious: Yes (Hospitalization)
  Sender: FDA-Public Use
  Company Number: US-JNJFOC-20170604231

PATIENT
  Sex: Male
  Weight: 97.3 kg

DRUGS (28)
  1. IBRUTINIB [Suspect]
     Active Substance: IBRUTINIB
     Indication: CHRONIC LYMPHOCYTIC LEUKAEMIA
     Route: 048
     Dates: start: 20130919
  2. FLOMAX [Concomitant]
     Active Substance: TAMSULOSIN HYDROCHLORIDE
     Dosage: SUSTAINED RELEASE 24 HRS
     Route: 048
  3. IMODIUM [Concomitant]
     Active Substance: LOPERAMIDE HYDROCHLORIDE
     Indication: DIARRHOEA
     Route: 048
  4. FINASTERIDE. [Concomitant]
     Active Substance: FINASTERIDE
     Route: 048
  5. NASACORT [Concomitant]
     Active Substance: TRIAMCINOLONE ACETONIDE
     Indication: SINUS CONGESTION
     Route: 045
  6. PROZAC [Concomitant]
     Active Substance: FLUOXETINE HYDROCHLORIDE
     Route: 048
  7. VITAMIN D3 [Concomitant]
     Active Substance: CHOLECALCIFEROL
     Route: 048
  8. TYLENOL [Concomitant]
     Active Substance: ACETAMINOPHEN
     Indication: POSTOPERATIVE ANALGESIA
     Dosage: 2 TABLET BY MOUTH EVERY 6 HRS.
     Route: 048
  9. NEURONTIN [Concomitant]
     Active Substance: GABAPENTIN
     Route: 048
  10. IMODIUM [Concomitant]
     Active Substance: LOPERAMIDE HYDROCHLORIDE
     Indication: DIARRHOEA
     Route: 048
  11. IMODIUM [Concomitant]
     Active Substance: LOPERAMIDE HYDROCHLORIDE
     Indication: GASTROINTESTINAL STOMA COMPLICATION
     Route: 048
  12. MYCOSTATIN [Concomitant]
     Active Substance: NYSTATIN
     Indication: DRY SKIN
     Dosage: 100,000 UNIT/GRAM
     Route: 061
  13. BACTRIM [Concomitant]
     Active Substance: SULFAMETHOXAZOLE\TRIMETHOPRIM
     Dosage: 400?80 MG; 1 TABLET BY MOUTH DAILY MONDAY, WEDNESDAY AND FRIDAY.
     Route: 048
  14. VITAMIN B12 [Concomitant]
     Active Substance: CYANOCOBALAMIN
     Route: 048
  15. PRIVIGEN [Concomitant]
     Active Substance: HUMAN IMMUNOGLOBULIN G
     Route: 048
  16. FOLIC ACID. [Concomitant]
     Active Substance: FOLIC ACID
     Route: 048
  17. NORCO [Concomitant]
     Active Substance: ACETAMINOPHEN\HYDROCODONE BITARTRATE
     Indication: PAIN
     Dosage: 5?325 MG TABLET 1?2 TABLETS AS NEEDED FOR PAIN
     Route: 048
  18. TESTIM [Concomitant]
     Active Substance: TESTOSTERONE
     Dosage: 50 MG/5 GRAM (1 %) GEL ACTUATION
     Route: 062
  19. IBRUTINIB [Suspect]
     Active Substance: IBRUTINIB
     Route: 048
  20. LIPITOR [Concomitant]
     Active Substance: ATORVASTATIN CALCIUM
     Indication: ACUTE MYOCARDIAL INFARCTION
     Route: 048
  21. PLAVIX [Concomitant]
     Active Substance: CLOPIDOGREL BISULFATE
     Indication: ACUTE MYOCARDIAL INFARCTION
     Route: 048
  22. LISINOPRIL. [Concomitant]
     Active Substance: LISINOPRIL
     Indication: ACUTE MYOCARDIAL INFARCTION
     Route: 048
  23. IMODIUM [Concomitant]
     Active Substance: LOPERAMIDE HYDROCHLORIDE
     Indication: GASTROINTESTINAL STOMA COMPLICATION
     Route: 048
  24. NITROSTAT [Concomitant]
     Active Substance: NITROGLYCERIN
     Indication: CHEST PAIN
     Dosage: IF NO RELIEF, TAKE 2 ADDITIONAL TABLET FOR EVERY 5 MINS
     Route: 060
  25. ROXICODONE [Concomitant]
     Active Substance: OXYCODONE HYDROCHLORIDE
     Indication: PAIN
     Dosage: 1 TAB FOR PAIN SCORE 1?5; 2 TAB FOR PAIN SCORE 6?10.
     Route: 048
  26. LOVENOX [Concomitant]
     Active Substance: ENOXAPARIN SODIUM
     Dosage: 100 MG/ML SYRINGE 100 MG
     Route: 058
  27. FENTANYL. [Concomitant]
     Active Substance: FENTANYL
     Dosage: 50 MCG/HR PATCH 72 HOUR 1 PATCH
     Route: 062
  28. VALTREX [Concomitant]
     Active Substance: VALACYCLOVIR HYDROCHLORIDE
     Route: 048

REACTIONS (4)
  - Anaemia [Recovered/Resolved]
  - Leukocytosis [Recovered/Resolved]
  - Hyperglycaemia [Recovered/Resolved]
  - Platelet count decreased [Recovered/Resolved]

NARRATIVE: CASE EVENT DATE: 20170526
